FAERS Safety Report 4736318-2 (Version None)
Quarter: 2005Q3

REPORT INFORMATION
  Report Type: 
  Country: None (occurrence: None)
  Receive Date: 20050802
  Receipt Date: 20050720
  Transmission Date: 20060218
  Serious: Yes (Hospitalization, Other)
  Sender: FDA-Public Use
  Company Number: 2005105728

PATIENT
  Age: 55 Year
  Sex: Female

DRUGS (2)
  1. PREDNISONE [Suspect]
     Indication: ASTHMA
     Dosage: 40 MG PER DAY ORAL
     Route: 048
     Dates: start: 20030101
  2. METHYLPREDNISOLONE SODIUM SUCCINATE [Suspect]
     Indication: ALLERGIC GRANULOMATOUS ANGIITIS
     Dosage: 1000 MG INTRAVENOUS
     Route: 042
     Dates: start: 20030101

REACTIONS (4)
  - ALLERGIC GRANULOMATOUS ANGIITIS [None]
  - MALABSORPTION [None]
  - OPTIC ATROPHY [None]
  - RETINAL ARTERY OCCLUSION [None]
